FAERS Safety Report 5585546-5 (Version None)
Quarter: 2008Q1

REPORT INFORMATION
  Report Type: 
  Country: None (occurrence: None)
  Receive Date: 20080109
  Receipt Date: 20080103
  Transmission Date: 20080703
  Serious: Yes (Other)
  Sender: FDA-Public Use
  Company Number: B0360503A

PATIENT
  Age: 33 Year
  Sex: Female

DRUGS (2)
  1. PAROXETINE HYDROCHLORIDE [Suspect]
     Route: 065
     Dates: start: 19960702
  2. DIAZEPAM [Concomitant]
     Dates: start: 20051115

REACTIONS (13)
  - ANXIETY [None]
  - APATHY [None]
  - CRYING [None]
  - DECREASED APPETITE [None]
  - DEPRESSED MOOD [None]
  - DISTURBANCE IN ATTENTION [None]
  - DIZZINESS [None]
  - DRUG WITHDRAWAL SYNDROME [None]
  - HYPERSOMNIA [None]
  - MUSCLE FATIGUE [None]
  - NAUSEA [None]
  - SUICIDAL IDEATION [None]
  - VOMITING [None]
